FAERS Safety Report 24524100 (Version 1)
Quarter: 2024Q4

REPORT INFORMATION
  Report Type: Spontaneous
  Country: CN (occurrence: CN)
  Receive Date: 20241018
  Receipt Date: 20241018
  Transmission Date: 20250115
  Serious: Yes (Hospitalization, Other)
  Sender: MEITHEAL PHARMACEUTICALS
  Company Number: CN-MEITHEAL-2024MPLIT00327

PATIENT
  Age: 34 Year
  Sex: Male

DRUGS (7)
  1. VANCOMYCIN [Suspect]
     Active Substance: VANCOMYCIN
     Indication: Staphylococcal infection
     Dosage: (D1-D12)
     Route: 042
     Dates: start: 20221021, end: 20221101
  2. VANCOMYCIN [Suspect]
     Active Substance: VANCOMYCIN
     Dosage: (D18-D22)
     Route: 042
     Dates: start: 20221107, end: 20221111
  3. LINEZOLID [Concomitant]
     Active Substance: LINEZOLID
     Indication: Staphylococcal infection
     Dosage: DAY 13 TO DAY 17
     Route: 042
     Dates: start: 20221102, end: 20221106
  4. LINEZOLID [Concomitant]
     Active Substance: LINEZOLID
     Dosage: DAY 23 TO DAY 36
     Route: 042
     Dates: start: 20221112, end: 20221125
  5. LINEZOLID [Concomitant]
     Active Substance: LINEZOLID
     Route: 065
  6. LIDOCAINE HYDROCHLORIDE [Concomitant]
     Active Substance: LIDOCAINE HYDROCHLORIDE
     Route: 065
  7. AMBROXOL [Concomitant]
     Active Substance: AMBROXOL
     Dosage: (D1-D2)
     Route: 042
     Dates: start: 20221021, end: 20221022

REACTIONS (1)
  - Gastrointestinal haemorrhage [Recovered/Resolved]

NARRATIVE: CASE EVENT DATE: 20221025
